FAERS Safety Report 8199027 (Version 7)
Quarter: 2012Q4

REPORT INFORMATION
  Report Type: 
  Country: US (occurrence: US)
  Receive Date: 20111025
  Receipt Date: 20121127
  Transmission Date: 20130627
  Serious: Yes (Hospitalization, Other)
  Sender: FDA-Public Use
  Company Number: US-GLAXOSMITHKLINE-A0946680A

PATIENT
  Age: 36 Year
  Sex: Female
  Weight: 99.8 kg

DRUGS (4)
  1. FLOLAN [Suspect]
     Indication: PULMONARY ARTERIAL HYPERTENSION
     Dosage: 21NGKM Continuous
     Route: 042
     Dates: start: 20110328
  2. COUMADIN [Suspect]
     Indication: PULMONARY ARTERIAL HYPERTENSION
     Route: 048
  3. TRACLEER [Concomitant]
     Dosage: 125MG Twice per day
  4. REVATIO [Concomitant]

REACTIONS (9)
  - Haemorrhage [Recovered/Resolved]
  - Subdural haematoma [Recovering/Resolving]
  - Brain oedema [Recovering/Resolving]
  - Device related infection [Unknown]
  - Headache [Recovering/Resolving]
  - Device malfunction [Unknown]
  - Incorrect dose administered [Unknown]
  - Palpitations [Recovered/Resolved]
  - Syncope [Recovered/Resolved]
